FAERS Safety Report 18645954 (Version 6)
Quarter: 2021Q1

REPORT INFORMATION
  Report Type: Report from Study
  Country: CO (occurrence: CO)
  Receive Date: 20201222
  Receipt Date: 20210220
  Transmission Date: 20210419
  Serious: Yes (Hospitalization, Other)
  Sender: FDA-Public Use
  Company Number: CO-AMGEN-COLSL2020167633

PATIENT
  Age: 66 Year
  Sex: Female

DRUGS (4)
  1. ARTIFICIAL TEARS [HYPROMELLOSE] [Concomitant]
     Dosage: ONE DROP IN EACH EYE, EVERY 12 HOURS OR REPEAT IN CASE OF FEEL DRY EYES
     Dates: start: 20210211
  2. VECTIBIX [Suspect]
     Active Substance: PANITUMUMAB
     Dosage: 270 MILLIGRAM, Q2WK
     Route: 042
  3. NATURAL TEARS [Concomitant]
     Active Substance: POLYVINYL ALCOHOL\POVIDONE
     Dosage: UNK
     Dates: start: 20201209
  4. VECTIBIX [Suspect]
     Active Substance: PANITUMUMAB
     Indication: COLORECTAL CANCER METASTATIC
     Dosage: 350 MILLIGRAM, Q2WK
     Route: 042
     Dates: start: 20190822

REACTIONS (13)
  - SARS-CoV-2 test positive [Not Recovered/Not Resolved]
  - Skin reaction [Not Recovered/Not Resolved]
  - Pyrexia [Recovered/Resolved]
  - Oropharyngeal pain [Recovering/Resolving]
  - Speech disorder [Recovering/Resolving]
  - Anosmia [Recovered/Resolved]
  - Mouth injury [Recovering/Resolving]
  - Skin exfoliation [Recovering/Resolving]
  - Influenza [Recovering/Resolving]
  - Delusion [Recovering/Resolving]
  - Visual impairment [Recovering/Resolving]
  - Ageusia [Recovered/Resolved]
  - Stomatitis [Recovering/Resolving]

NARRATIVE: CASE EVENT DATE: 2020
